FAERS Safety Report 5929493-5 (Version None)
Quarter: 2008Q4

REPORT INFORMATION
  Report Type: 
  Country: None (occurrence: None)
  Receive Date: 20081024
  Receipt Date: 20081021
  Transmission Date: 20090506
  Serious: Yes (Hospitalization)
  Sender: FDA-Public Use
  Company Number: A0743320A

PATIENT
  Age: 22 Year
  Sex: Female

DRUGS (3)
  1. PAXIL [Suspect]
     Indication: ANXIETY
     Route: 048
  2. XANAX [Concomitant]
     Dosage: .5MG AS REQUIRED
  3. LUNESTA [Concomitant]
     Dosage: 3MG AT NIGHT

REACTIONS (5)
  - INTENTIONAL SELF-INJURY [None]
  - PANIC ATTACK [None]
  - SCAR [None]
  - SUICIDE ATTEMPT [None]
  - THERMAL BURN [None]
